FAERS Safety Report 8809675 (Version 1)
Quarter: 2012Q4

REPORT INFORMATION
  Report Type: 
  Country: US (occurrence: US)
  Receive Date: 20120926
  Receipt Date: 20120926
  Transmission Date: 20130627
  Serious: Yes (Death)
  Sender: FDA-Public Use
  Company Number: US-ROCHE-1104573

PATIENT
  Sex: Female

DRUGS (3)
  1. AVASTIN [Suspect]
     Indication: COLON CANCER METASTATIC
     Route: 042
     Dates: start: 20071212, end: 20080117
  2. XELODA [Suspect]
     Indication: PRODUCT USED FOR UNKNOWN INDICATION
     Route: 065
     Dates: start: 20080214
  3. IRINOTECAN [Concomitant]
     Route: 065
     Dates: start: 20080214

REACTIONS (3)
  - Disease progression [Fatal]
  - Diarrhoea [Unknown]
  - Treatment failure [Unknown]
